FAERS Safety Report 9804127 (Version 1)
Quarter: 2014Q1

REPORT INFORMATION
  Report Type: Spontaneous
  Country: GB (occurrence: GB)
  Receive Date: 20140108
  Receipt Date: 20140108
  Transmission Date: 20141002
  Serious: Yes (Other)
  Sender: FDA-Public Use
  Company Number: GB-WATSON-2013-24207

PATIENT
  Age: 16 Year
  Sex: Female
  Weight: 60 kg

DRUGS (2)
  1. LAMOTRIGINE (UNKNOWN) [Suspect]
     Indication: EPILEPSY
     Dosage: 25 MG BID. 25MG OD FOR FIRST 2 WEEKS THEN 25MG BD
     Route: 048
     Dates: end: 20131217
  2. LAMOTRIGINE (UNKNOWN) [Suspect]
     Dosage: 25 MG DAILY. 25MG OD FOR FIRST 2 WEEKS THEN 25MG BD
     Route: 048
     Dates: start: 20121125

REACTIONS (6)
  - Urosepsis [Unknown]
  - Urinary tract infection [Unknown]
  - Pyrexia [Unknown]
  - Pancytopenia [Not Recovered/Not Resolved]
  - Rash generalised [Unknown]
  - Malaise [Unknown]
